FAERS Safety Report 7122167-7 (Version None)
Quarter: 2010Q4

REPORT INFORMATION
  Report Type: 
  Country: None (occurrence: None)
  Receive Date: 20101124
  Receipt Date: 20101117
  Transmission Date: 20110411
  Serious: Yes (Hospitalization)
  Sender: FDA-Public Use
  Company Number: NO-PFIZER INC-2010150439

PATIENT
  Age: 65 Year
  Sex: Female

DRUGS (4)
  1. RELISTOR [Suspect]
     Indication: CONSTIPATION
     Dosage: 8 MG, UNK
     Route: 058
     Dates: start: 20100830, end: 20100915
  2. LAXOBERAL [Concomitant]
     Indication: CONSTIPATION
     Dosage: 15 GTT DROPS TWICE DAILY
     Route: 048
  3. LACTULOSE [Concomitant]
     Indication: CONSTIPATION
     Dosage: 30 ML, 3X/DAY
     Route: 048
  4. OXYCONTIN [Concomitant]
     Indication: PAIN
     Dosage: 80 MG, 2X/DAY
     Route: 048

REACTIONS (2)
  - ABDOMINAL PAIN UPPER [None]
  - MELAENA [None]
